FAERS Safety Report 11710371 (Version 1)
Quarter: 2015Q4

REPORT INFORMATION
  Report Type: Spontaneous
  Country: US (occurrence: US)
  Receive Date: 20151104
  Receipt Date: 20151104
  Transmission Date: 20160304
  Serious: No
  Sender: FDA-Public Use
  Company Number: US-ELI_LILLY_AND_COMPANY-US201104003293

PATIENT
  Age: 82 Year
  Sex: Female

DRUGS (1)
  1. FORTEO [Suspect]
     Active Substance: TERIPARATIDE
     Indication: FRACTURE
     Dosage: UNK, QD
     Dates: start: 20110305

REACTIONS (4)
  - Off label use [Recovered/Resolved]
  - Headache [Unknown]
  - Muscle spasms [Unknown]
  - Adverse drug reaction [Unknown]
